FAERS Safety Report 4446902-1 (Version None)
Quarter: 2004Q3

REPORT INFORMATION
  Report Type: 
  Country: None (occurrence: None)
  Receive Date: 20040908
  Receipt Date: 20040824
  Transmission Date: 20050211
  Serious: Yes (Other)
  Sender: FDA-Public Use
  Company Number: 2004-DE-04496GD

PATIENT
  Sex: Male

DRUGS (3)
  1. NEVIRAPINE (NEVIRAPINE) (NR) (NEVIRAPINE) [Suspect]
     Route: 015
  2. ZIDOVUDINE [Suspect]
     Indication: PROPHYLAXIS AGAINST HIV INFECTION
     Dosage: SEE IMAGE
  3. LAMIVUDINE (LAMIVUDINE) [Suspect]
     Route: 015

REACTIONS (6)
  - HUMAN IMMUNODEFICIENCY VIRUS TRANSMISSION [None]
  - MATERNAL CONDITION AFFECTING FOETUS [None]
  - MATERNAL DRUGS AFFECTING FOETUS [None]
  - MULTIPLE-DRUG RESISTANCE [None]
  - TREATMENT NONCOMPLIANCE [None]
  - VACUUM EXTRACTOR DELIVERY [None]
